FAERS Safety Report 12607146 (Version 1)
Quarter: 2016Q3

REPORT INFORMATION
  Report Type: Spontaneous
  Country: US (occurrence: US)
  Receive Date: 20160729
  Receipt Date: 20160729
  Transmission Date: 20161109
  Serious: Yes (Hospitalization, Other)
  Sender: FDA-Public Use
  Company Number: US-PFIZER INC-2016360954

PATIENT
  Age: 44 Year
  Sex: Male

DRUGS (3)
  1. XANAX [Suspect]
     Active Substance: ALPRAZOLAM
     Indication: SLEEP DISORDER
  2. XANAX [Suspect]
     Active Substance: ALPRAZOLAM
     Indication: ANXIETY DISORDER
     Dosage: 2 MG, 8-9 TIMES A DAY, TABLETS, BY MOUTH
     Route: 048
     Dates: end: 2014
  3. XANAX [Suspect]
     Active Substance: ALPRAZOLAM
     Indication: PANIC ATTACK
     Dosage: 0.25 MG, 4X/DAY
     Dates: start: 2004

REACTIONS (6)
  - Memory impairment [Unknown]
  - Nerve injury [Unknown]
  - Withdrawal syndrome [Unknown]
  - Hypertension [Unknown]
  - Dependence [Unknown]
  - Anxiety [Unknown]

NARRATIVE: CASE EVENT DATE: 201403
